FAERS Safety Report 20562930 (Version 1)
Quarter: 2022Q1

REPORT INFORMATION
  Report Type: Report from Study
  Country: US (occurrence: US)
  Receive Date: 20220307
  Receipt Date: 20220307
  Transmission Date: 20220423
  Serious: Yes (Other)
  Sender: FDA-Public Use
  Company Number: US-ABBVIE-22K-163-4302020-00

PATIENT
  Sex: Male

DRUGS (1)
  1. HUMIRA [Suspect]
     Active Substance: ADALIMUMAB
     Indication: Product used for unknown indication
     Route: 058

REACTIONS (6)
  - Rectal obstruction [Unknown]
  - Anal neoplasm [Unknown]
  - Ulcer [Unknown]
  - Abdominal distension [Unknown]
  - Diarrhoea haemorrhagic [Recovering/Resolving]
  - Anal haemorrhage [Unknown]
